FAERS Safety Report 22381434 (Version 1)
Quarter: 2023Q2

REPORT INFORMATION
  Report Type: Spontaneous
  Country: US (occurrence: US)
  Receive Date: 20230530
  Receipt Date: 20230530
  Transmission Date: 20230721
  Serious: Yes (Hospitalization)
  Sender: FDA-Public Use
  Company Number: US-BRISTOL-MYERS SQUIBB COMPANY-2023-075226

PATIENT
  Age: 72 Year
  Sex: Female
  Weight: 48.99 kg

DRUGS (1)
  1. REVLIMID [Suspect]
     Active Substance: LENALIDOMIDE
     Indication: Plasma cell myeloma
     Dosage: FREQUENCY : DAYS 1-21 7 DAYS OFF
     Route: 048

REACTIONS (3)
  - Hip fracture [Unknown]
  - Bone disorder [Unknown]
  - Fall [Unknown]

NARRATIVE: CASE EVENT DATE: 20230512
